FAERS Safety Report 16701042 (Version 1)
Quarter: 2020Q3

REPORT INFORMATION
  Report Type: Spontaneous
  Country: ES (occurrence: ES)
  Receive Date: 20190814
  Receipt Date: 20190814
  Transmission Date: 20201104
  Serious: Yes (Other)
  Sender: FDA-Public Use
  Company Number: ES-TEVA-2016-000239

PATIENT
  Age: 82 Year
  Sex: Female

DRUGS (7)
  1. ALENDRONIC ACID [Suspect]
     Active Substance: ALENDRONIC ACID
     Indication: POLYMYALGIA RHEUMATICA
     Route: 048
  2. OMEPRAZOLE. [Concomitant]
     Active Substance: OMEPRAZOLE
     Dosage: FOR MORE THAN 10 YEARS
     Route: 048
  3. IBANDRONIC ACID. [Suspect]
     Active Substance: IBANDRONIC ACID
     Indication: POLYMYALGIA RHEUMATICA
     Dosage: FOR MORE THAN 15 YEARS
     Route: 048
  4. DIDRONEL [Suspect]
     Active Substance: ETIDRONATE DISODIUM
     Indication: POLYMYALGIA RHEUMATICA
     Dosage: FOR MORE THAN 15 YEARS
     Route: 048
  5. PREDNISONE. [Suspect]
     Active Substance: PREDNISONE
     Indication: POLYMYALGIA RHEUMATICA
     Dosage: 5?10 MG DAILY
     Route: 048
  6. DENOSUMAB [Suspect]
     Active Substance: DENOSUMAB
     Indication: OSTEOPOROSIS
     Route: 065
  7. RISEDRONATE [Suspect]
     Active Substance: RISEDRONATE SODIUM
     Indication: POLYMYALGIA RHEUMATICA
     Dosage: FOR MORE THAN 15 YEARS
     Route: 048

REACTIONS (3)
  - Atypical femur fracture [Unknown]
  - Product use in unapproved indication [Unknown]
  - Fracture delayed union [Unknown]
